FAERS Safety Report 4636021-3 (Version None)
Quarter: 2005Q2

REPORT INFORMATION
  Report Type: 
  Country: None (occurrence: None)
  Receive Date: 20050331
  Receipt Date: 20040115
  Transmission Date: 20051028
  Serious: Yes (Other)
  Sender: FDA-Public Use
  Company Number: 200410220BCC

PATIENT
  Age: 65 Year
  Sex: Female

DRUGS (3)
  1. ALEVE [Suspect]
     Dosage: ORAL
     Route: 048
  2. NSAID [Concomitant]
  3. ASPIRIN [Concomitant]

REACTIONS (1)
  - GASTRIC ULCER [None]
